FAERS Safety Report 8989692 (Version 1)
Quarter: 2012Q4

REPORT INFORMATION
  Report Type: 
  Country: US (occurrence: US)
  Receive Date: 20121227
  Receipt Date: 20121227
  Transmission Date: 20130627
  Serious: Yes (Other)
  Sender: FDA-Public Use
  Company Number: US-MERCK-1212USA009323

PATIENT

DRUGS (3)
  1. POSACONAZOLE [Suspect]
     Indication: ANTIFUNGAL PROPHYLAXIS
     Dosage: 200 mg, tid
  2. FAMOTIDINE [Concomitant]
  3. ESOMEPRAZOLE [Concomitant]

REACTIONS (1)
  - Fungal infection [Unknown]
